FAERS Safety Report 8471973-5 (Version None)
Quarter: 2012Q2

REPORT INFORMATION
  Report Type: 
  Country: None (occurrence: None)
  Receive Date: 20120627
  Receipt Date: 20120615
  Transmission Date: 20120825
  Serious: Yes (Hospitalization)
  Sender: FDA-Public Use
  Company Number: JP-COVIDIEN/TYCO HEALTHCARE/MALLINCKRODT-T201202480

PATIENT
  Sex: Female
  Weight: 55.9 kg

DRUGS (12)
  1. METHADONE HCL [Suspect]
     Indication: CANCER PAIN
     Dosage: 15 MG PER DAY
     Route: 048
     Dates: start: 20120413, end: 20120604
  2. MUCOSTA [Concomitant]
     Dosage: 300 MG, TID
     Dates: start: 20120401
  3. OXINORM                            /00045603/ [Concomitant]
     Indication: CANCER PAIN
     Dosage: 5 MG, PRN
  4. METHADONE HCL [Suspect]
     Dosage: 20 MG PER DAY
     Route: 048
     Dates: start: 20120605, end: 20120611
  5. TRYPTANOL                          /00002202/ [Concomitant]
     Dosage: 20 MG, QD
     Dates: start: 20120401
  6. MAGMITT [Concomitant]
     Dosage: 990 MG, TID
     Dates: start: 20120417
  7. METRONIDAZOLE [Concomitant]
     Dosage: ADEQUATE DOSE FOR EXTERNAL USE
     Dates: start: 20120421
  8. PROPETO [Concomitant]
     Dosage: ADEQUATE DOSE FOR EXTERNAL USE
  9. GABAPENTIN [Concomitant]
     Dosage: 800 MG, BID
     Dates: start: 20120401
  10. METHADONE HCL [Suspect]
     Dosage: 30 MG PER DAY
     Route: 048
     Dates: start: 20120612
  11. LOXONIN [Concomitant]
     Dosage: 180 MG, TID
     Dates: start: 20120401
  12. ROHYPNOL [Concomitant]
     Dosage: 1 MG, QD
     Dates: start: 20120401

REACTIONS (1)
  - NEOPLASM MALIGNANT [None]
